FAERS Safety Report 8535066-0 (Version None)
Quarter: 2012Q3

REPORT INFORMATION
  Report Type: 
  Country: None (occurrence: None)
  Receive Date: 20120724
  Receipt Date: 20120720
  Transmission Date: 20120928
  Serious: No
  Sender: FDA-Public Use
  Company Number: US-PFIZER INC-2012176976

PATIENT
  Sex: Male
  Weight: 92.971 kg

DRUGS (7)
  1. RISPERDAL [Concomitant]
     Indication: MENTAL DISORDER
     Dosage: UNK
  2. IBUPROFEN [Concomitant]
     Indication: MULTIPLE SCLEROSIS
     Dosage: UNK
  3. CHANTIX [Suspect]
     Indication: SMOKING CESSATION THERAPY
     Dosage: 0.5 MG, 1X/DAY
     Route: 048
     Dates: start: 20110101, end: 20111101
  4. BACLOFEN [Concomitant]
     Indication: MULTIPLE SCLEROSIS
     Dosage: UNK
  5. LORAZEPAM [Concomitant]
     Indication: MENTAL DISORDER
     Dosage: UNK
  6. CHANTIX [Suspect]
     Dosage: 0.5 MG, 1X/DAY
     Route: 048
     Dates: start: 20120717
  7. COPAXONE [Concomitant]
     Indication: MULTIPLE SCLEROSIS
     Dosage: UNK, 1X/DAY

REACTIONS (1)
  - ABNORMAL DREAMS [None]
